FAERS Safety Report 5721300-9 (Version None)
Quarter: 2008Q2

REPORT INFORMATION
  Report Type: 
  Country: None (occurrence: None)
  Receive Date: 20080428
  Receipt Date: 20080428
  Transmission Date: 20081010
  Serious: Yes (Other)
  Sender: FDA-Public Use
  Company Number: None

PATIENT
  Age: 38 Year
  Sex: Female
  Weight: 61.6892 kg

DRUGS (2)
  1. ZOLPIDEM [Suspect]
     Indication: MAJOR DEPRESSION
     Dosage: 10MG Q HS PRN PO
     Route: 048
     Dates: start: 20080305, end: 20080424
  2. ZOLPIDEM [Suspect]
     Indication: PSYCHOTIC DISORDER
     Dosage: 10MG Q HS PRN PO
     Route: 048
     Dates: start: 20080305, end: 20080424

REACTIONS (3)
  - AMNESIA [None]
  - BLISTER [None]
  - THERMAL BURN [None]
